FAERS Safety Report 22330857 (Version 1)
Quarter: 2023Q2

REPORT INFORMATION
  Report Type: Spontaneous
  Country: US (occurrence: None)
  Receive Date: 20230515
  Receipt Date: 20230515
  Transmission Date: 20230721
  Serious: No
  Sender: FDA-Public Use
  Company Number: None

PATIENT
  Sex: Female

DRUGS (7)
  1. AMBRISENTAN [Suspect]
     Active Substance: AMBRISENTAN
     Indication: Pulmonary arterial hypertension
     Dosage: 5 MG DAILY ORAL
     Route: 048
  2. TORSEMIDE [Concomitant]
     Active Substance: TORSEMIDE
  3. GABAPENTIN [Concomitant]
     Active Substance: GABAPENTIN
  4. ATORVASTATIN CALCIUM [Concomitant]
     Active Substance: ATORVASTATIN CALCIUM
  5. TYLENOL EXTRA STRENGTH [Concomitant]
     Active Substance: ACETAMINOPHEN
  6. SILDENAFIL [Suspect]
     Active Substance: SILDENAFIL
  7. SILDENAFIL CITRATE [Concomitant]

REACTIONS (3)
  - Aspiration [None]
  - Product dose omission in error [None]
  - Product use issue [None]
